FAERS Safety Report 10208787 (Version 1)
Quarter: 2014Q2

REPORT INFORMATION
  Report Type: Spontaneous
  Country: US (occurrence: US)
  Receive Date: 20140530
  Receipt Date: 20140530
  Transmission Date: 20141212
  Serious: Yes (Disabling, Other)
  Sender: FDA-Public Use
  Company Number: US-GE HEALTHCARE MEDICAL DIAGNOSTICS-HYPQ-PR-1405L-0002

PATIENT
  Sex: Male

DRUGS (2)
  1. HYPAQUE SODIUM [Suspect]
     Indication: PRODUCT USED FOR UNKNOWN INDICATION
     Dosage: DOSE NOT REPORTED
     Route: 065
  2. HYPAQUE SODIUM [Suspect]
     Indication: DIAGNOSTIC PROCEDURE

REACTIONS (2)
  - Hypersensitivity [Unknown]
  - Paralysis [Unknown]
